FAERS Safety Report 24320725 (Version 1)
Quarter: 2024Q3

REPORT INFORMATION
  Report Type: Spontaneous
  Country: US (occurrence: US)
  Receive Date: 20240915
  Receipt Date: 20240915
  Transmission Date: 20241016
  Serious: No
  Sender: NOVARTIS
  Company Number: US-002147023-NVSC2024US183936

PATIENT
  Sex: Male

DRUGS (1)
  1. MEKINIST [Suspect]
     Active Substance: TRAMETINIB DIMETHYL SULFOXIDE
     Indication: Histiocytosis
     Dosage: 1.5 MG, QD (1 TIME A DAY)
     Route: 048
     Dates: start: 202407

REACTIONS (2)
  - Aphthous ulcer [Unknown]
  - Off label use [Unknown]
